FAERS Safety Report 8081398-2 (Version None)
Quarter: 2012Q1

REPORT INFORMATION
  Report Type: 
  Country: None (occurrence: None)
  Receive Date: 20120130
  Receipt Date: 20120123
  Transmission Date: 20120608
  Serious: Yes (Hospitalization)
  Sender: FDA-Public Use
  Company Number: FR-PFIZER INC-K201000332

PATIENT
  Age: 83 Year
  Sex: Female

DRUGS (3)
  1. RAMIPRIL [Interacting]
     Dosage: 2.5 MG, 1X/DAY
     Route: 048
     Dates: end: 20091210
  2. ALDACTONE [Suspect]
     Dosage: 25 MG, 1X/DAY
     Route: 048
     Dates: end: 20091210
  3. LASIX [Interacting]
     Dosage: 500 MG, 1X/DAY
     Route: 048
     Dates: end: 20091210

REACTIONS (6)
  - VOMITING [None]
  - URINARY RETENTION [None]
  - RENAL FAILURE ACUTE [None]
  - HYPONATRAEMIA [None]
  - DEHYDRATION [None]
  - DRUG INTERACTION [None]
